FAERS Safety Report 25010726 (Version 2)
Quarter: 2025Q1

REPORT INFORMATION
  Report Type: Spontaneous
  Country: CN (occurrence: CN)
  Receive Date: 20250225
  Receipt Date: 20250304
  Transmission Date: 20250409
  Serious: Yes (Other)
  Sender: BOEHRINGER INGELHEIM
  Company Number: CN-BoehringerIngelheim-2025-BI-010985

PATIENT
  Age: 62 Year
  Sex: Male
  Weight: 60.000 kg

DRUGS (3)
  1. COMBIVENT [Suspect]
     Active Substance: ALBUTEROL SULFATE\IPRATROPIUM BROMIDE
     Indication: Muscle spasms
     Dates: start: 20191104, end: 20191104
  2. PULMICORT RESPULES [Suspect]
     Active Substance: BUDESONIDE
     Indication: Antiinflammatory therapy
     Dosage: FOA SUSPENSION?ROA INTRANASAL
     Dates: start: 20191104, end: 20191104
  3. PULMICORT RESPULES [Suspect]
     Active Substance: BUDESONIDE
     Indication: Muscle spasms

REACTIONS (3)
  - Oxygen saturation decreased [Recovering/Resolving]
  - Dyspnoea [Recovering/Resolving]
  - Tachycardia [Recovering/Resolving]

NARRATIVE: CASE EVENT DATE: 20191104
